FAERS Safety Report 8827730 (Version 1)
Quarter: 2012Q4

REPORT INFORMATION
  Report Type: 
  Country: NZ (occurrence: NZ)
  Receive Date: 20121005
  Receipt Date: 20121005
  Transmission Date: 20130627
  Serious: Yes (Other)
  Sender: FDA-Public Use
  Company Number: PHHY2012NZ084477

PATIENT
  Age: 26 Year
  Sex: Female

DRUGS (1)
  1. CLOZARIL [Suspect]
     Indication: SCHIZOPHRENIA
     Route: 048
     Dates: start: 20020115

REACTIONS (4)
  - C-reactive protein increased [Unknown]
  - Blood urea decreased [Unknown]
  - Platelet count increased [Unknown]
  - Haemoglobin decreased [Unknown]
